FAERS Safety Report 8778729 (Version 1)
Quarter: 2012Q4

REPORT INFORMATION
  Report Type: 
  Country: GB (occurrence: GB)
  Receive Date: 20120912
  Receipt Date: 20120912
  Transmission Date: 20130627
  Serious: Yes (Other)
  Sender: FDA-Public Use
  Company Number: GB-ABBOTT-12P-167-0975150-00

PATIENT
  Age: 39 Year
  Sex: Male

DRUGS (5)
  1. IBUPROFEN [Suspect]
  2. GABAPENTIN [Concomitant]
     Indication: PRODUCT USED FOR UNKNOWN INDICATION
     Dates: start: 20120516, end: 20120528
  3. CO-DYDRAMOL [Concomitant]
     Indication: PRODUCT USED FOR UNKNOWN INDICATION
     Dates: start: 20120526, end: 20120609
  4. CO-DYDRAMOL [Concomitant]
     Dates: start: 20120611, end: 20120709
  5. LIDOCAINE HYDROCHLORIDE [Concomitant]
     Indication: PRODUCT USED FOR UNKNOWN INDICATION
     Dates: start: 20120626, end: 20120629

REACTIONS (1)
  - Asthma [Recovered/Resolved]
